FAERS Safety Report 23700596 (Version 1)
Quarter: 2024Q2

REPORT INFORMATION
  Report Type: Spontaneous
  Country: US (occurrence: US)
  Receive Date: 20240403
  Receipt Date: 20240403
  Transmission Date: 20240716
  Serious: Yes (Other)
  Sender: FDA-Public Use
  Company Number: US-BRISTOL-MYERS SQUIBB COMPANY-2024-051173

PATIENT
  Age: 75 Year
  Sex: Female
  Weight: 47.63 kg

DRUGS (8)
  1. REVLIMID [Suspect]
     Active Substance: LENALIDOMIDE
     Indication: Plasma cell myeloma
     Dosage: FREQUENCY: 21 DAYS ON/7 DAYS OFF
     Route: 048
     Dates: start: 20230405, end: 202403
  2. REVLIMID [Suspect]
     Active Substance: LENALIDOMIDE
     Dosage: FREQUENCY: 21 DAYS ON/7 DAYS OFF
     Route: 048
     Dates: start: 202403
  3. NYSTATIN;TRIAMCINOLONE [Concomitant]
     Indication: Product used for unknown indication
     Dosage: 100000-0.1 OI
  4. CITRACAL + D3 [Concomitant]
     Indication: Product used for unknown indication
     Dosage: 250-107-500 CHEW
  5. XGEVA [Concomitant]
     Active Substance: DENOSUMAB
     Indication: Product used for unknown indication
     Dosage: 120MG/1.7ML
  6. CYANOCOBALAMIN [Concomitant]
     Active Substance: CYANOCOBALAMIN
     Indication: Product used for unknown indication
     Dosage: 1000MCG/ML
  7. METOPROLOL TARTRATE [Concomitant]
     Active Substance: METOPROLOL TARTRATE
     Indication: Product used for unknown indication
  8. HYDRALAZINE HCL [Concomitant]
     Active Substance: HYDRALAZINE HYDROCHLORIDE
     Indication: Product used for unknown indication

REACTIONS (1)
  - Neutropenia [Recovered/Resolved]

NARRATIVE: CASE EVENT DATE: 20240315
